FAERS Safety Report 4944980-4 (Version None)
Quarter: 2006Q1

REPORT INFORMATION
  Report Type: 
  Country: None (occurrence: None)
  Receive Date: 20060123
  Receipt Date: 20050727
  Transmission Date: 20060701
  Serious: Yes (Death)
  Sender: FDA-Public Use
  Company Number: PHEH2005US07955

PATIENT
  Age: 79 Year
  Sex: Male

DRUGS (1)
  1. SANDOSTATIN LAR [Suspect]
     Indication: NEUROENDOCRINE CARCINOMA
     Dosage: QMO, INJECTION NOS
     Dates: start: 20040401, end: 20040601

REACTIONS (2)
  - DISEASE PROGRESSION [None]
  - NEUROENDOCRINE CARCINOMA [None]
